FAERS Safety Report 25768150 (Version 1)
Quarter: 2025Q3

REPORT INFORMATION
  Report Type: Spontaneous
  Country: US (occurrence: US)
  Receive Date: 20250905
  Receipt Date: 20250905
  Transmission Date: 20251020
  Serious: No
  Sender: DOMPE FARMACEUTICI
  Company Number: US-FARMAPROD-202505-1809

PATIENT
  Sex: Female

DRUGS (14)
  1. OXERVATE [Suspect]
     Active Substance: CENEGERMIN-BKBJ
     Indication: Neurotrophic keratopathy
     Route: 047
     Dates: start: 20250515
  2. OXERVATE [Suspect]
     Active Substance: CENEGERMIN-BKBJ
  3. BENZTROPINE MESYLATE [Concomitant]
     Active Substance: BENZTROPINE MESYLATE
  4. GABAPENTIN [Concomitant]
     Active Substance: GABAPENTIN
  5. VALACYCLOVIR [Concomitant]
     Active Substance: VALACYCLOVIR HYDROCHLORIDE
  6. ACETAMINOPHEN\HYDROCODONE [Concomitant]
     Active Substance: ACETAMINOPHEN\HYDROCODONE
  7. ARTIFICIAL TEARS [CARMELLOSE SODIUM] [Concomitant]
  8. BRIMONIDINE TARTRATE;BRINZOLAMIDE;TIMOLOL MALEATE [Concomitant]
  9. MELATONIN [Concomitant]
     Active Substance: MELATONIN
  10. RISPERIDONE [Concomitant]
     Active Substance: RISPERIDONE
  11. QUETIAPINE FUMARATE [Concomitant]
     Active Substance: QUETIAPINE FUMARATE
  12. PANTOPRAZOLE SODIUM [Concomitant]
     Active Substance: PANTOPRAZOLE SODIUM
  13. LOTEPREDNOL ETABONATE [Concomitant]
     Active Substance: LOTEPREDNOL ETABONATE
  14. STOOL  SOFTENER [Concomitant]

REACTIONS (5)
  - Vision blurred [Unknown]
  - Headache [Not Recovered/Not Resolved]
  - Eye pain [Unknown]
  - Ocular hyperaemia [Unknown]
  - Eye inflammation [Unknown]
